FAERS Safety Report 11543193 (Version 1)
Quarter: 2015Q3

REPORT INFORMATION
  Report Type: Spontaneous
  Country: US (occurrence: US)
  Receive Date: 20150903
  Receipt Date: 20150903
  Transmission Date: 20151125
  Serious: No
  Sender: FDA-Public Use
  Company Number: US-ELI_LILLY_AND_COMPANY-US201206006391

PATIENT

DRUGS (6)
  1. PRENATAL VITAMINS                  /01549301/ [Concomitant]
     Active Substance: VITAMINS
     Route: 064
  2. TERBUTALINE [Concomitant]
     Active Substance: TERBUTALINE
  3. HUMALOG [Suspect]
     Active Substance: INSULIN LISPRO
     Dosage: UNK
     Route: 064
  4. PRENATAL VITAMINS                  /01549301/ [Concomitant]
     Active Substance: VITAMINS
     Route: 064
  5. TERBUTALINE [Concomitant]
     Active Substance: TERBUTALINE
  6. HUMALOG [Suspect]
     Active Substance: INSULIN LISPRO
     Dosage: UNK
     Route: 064

REACTIONS (2)
  - Large for dates baby [Recovered/Resolved]
  - Foetal exposure during pregnancy [Recovered/Resolved]
